FAERS Safety Report 23080247 (Version 1)
Quarter: 2023Q4

REPORT INFORMATION
  Report Type: Spontaneous
  Country: US (occurrence: None)
  Receive Date: 20231018
  Receipt Date: 20231018
  Transmission Date: 20240110
  Serious: Yes (Other)
  Sender: FDA-Public Use
  Company Number: None

PATIENT
  Age: 21 Year
  Sex: Male
  Weight: 117 kg

DRUGS (17)
  1. VRAYLAR [Suspect]
     Active Substance: CARIPRAZINE
     Indication: Bipolar I disorder
     Dosage: OTHER QUANTITY : 1 CAPSULE(S);?
     Route: 048
     Dates: start: 20231006
  2. VRAYLAR [Concomitant]
     Active Substance: CARIPRAZINE
  3. ESCITALOPRAM [Concomitant]
     Active Substance: ESCITALOPRAM OXALATE
  4. DIVALPROEX SODIUM [Concomitant]
     Active Substance: DIVALPROEX SODIUM
  5. LITHIUM [Concomitant]
     Active Substance: LITHIUM
  6. CLINDAMYCIN [Concomitant]
     Active Substance: CLINDAMYCIN
  7. HYDROXYZINE [Concomitant]
     Active Substance: HYDROXYZINE HYDROCHLORIDE
  8. MINOCYCLINE [Concomitant]
     Active Substance: MINOCYCLINE HYDROCHLORIDE
  9. METFORMIN [Concomitant]
     Active Substance: METFORMIN HYDROCHLORIDE
  10. DICLOMINE [Concomitant]
  11. OXYBUTYNIN [Concomitant]
     Active Substance: OXYBUTYNIN
  12. PANTOPRAZOLE [Concomitant]
     Active Substance: PANTOPRAZOLE
  13. HERBALS\GARCINIA CAMBOGIA FRUIT [Concomitant]
     Active Substance: HERBALS\GARCINIA CAMBOGIA FRUIT
  14. APPLE CIDER VINEGAR [Concomitant]
     Active Substance: APPLE CIDER VINEGAR
  15. VITAMIN B12 [Concomitant]
     Active Substance: CYANOCOBALAMIN
  16. MAGNESIUM [Concomitant]
     Active Substance: MAGNESIUM
  17. CENTRUM ADULTS [Concomitant]

REACTIONS (3)
  - Akathisia [None]
  - Fatigue [None]
  - Nausea [None]

NARRATIVE: CASE EVENT DATE: 20231013
